FAERS Safety Report 11098324 (Version 3)
Quarter: 2015Q2

REPORT INFORMATION
  Report Type: Spontaneous
  Country: US (occurrence: US)
  Receive Date: 20150507
  Receipt Date: 20150602
  Transmission Date: 20150821
  Serious: Yes (Hospitalization)
  Sender: FDA-Public Use
  Company Number: US-B.I. PHARMACEUTICALS,INC./RIDGEFIELD-2015-BI-23731BP

PATIENT
  Age: 84 Year
  Sex: Female
  Weight: 73.94 kg

DRUGS (1)
  1. SPIRIVA [Suspect]
     Active Substance: TIOTROPIUM BROMIDE MONOHYDRATE
     Indication: EMPHYSEMA
     Dosage: 18 MCG
     Route: 055
     Dates: start: 2012

REACTIONS (5)
  - Cardiac disorder [Unknown]
  - Fatigue [Not Recovered/Not Resolved]
  - Chest pain [Recovered/Resolved]
  - Dyspnoea [Not Recovered/Not Resolved]
  - Product quality issue [Unknown]

NARRATIVE: CASE EVENT DATE: 201501
